FAERS Safety Report 17807409 (Version 2)
Quarter: 2021Q3

REPORT INFORMATION
  Report Type: Report from Study
  Country: US (occurrence: US)
  Receive Date: 20200520
  Receipt Date: 20210922
  Transmission Date: 20211014
  Serious: Yes (Other)
  Sender: FDA-Public Use
  Company Number: US-PFIZER INC-2020196390

PATIENT

DRUGS (1)
  1. HYDROCORTISONE SODIUM SUCCINATE [Suspect]
     Active Substance: HYDROCORTISONE SODIUM SUCCINATE
     Dosage: 5 MG/KG, DAILY (IN THREE DIVIDED DOSES, FOR 5 CONSECUTIVE DAYS TO FACILITATE EXTUBATION)

REACTIONS (2)
  - Intraventricular haemorrhage neonatal [Unknown]
  - Periventricular leukomalacia [Unknown]
